FAERS Safety Report 21610882 (Version 1)
Quarter: 2022Q4

REPORT INFORMATION
  Report Type: Report from Study
  Country: CA (occurrence: CA)
  Receive Date: 20221117
  Receipt Date: 20221117
  Transmission Date: 20230113
  Serious: Yes (Other)
  Sender: FDA-Public Use
  Company Number: CA-PFIZER INC-202201303568

PATIENT
  Age: 38 Year
  Sex: Female
  Weight: 73 kg

DRUGS (15)
  1. ATIVAN [Suspect]
     Active Substance: LORAZEPAM
     Route: 065
  2. OCRELIZUMAB [Suspect]
     Active Substance: OCRELIZUMAB
     Indication: Relapsing-remitting multiple sclerosis
     Dosage: 300 MG, 1 EVERY 2 WEEKS
  3. OCRELIZUMAB [Suspect]
     Active Substance: OCRELIZUMAB
     Indication: Relapsing-remitting multiple sclerosis
     Dosage: 300 MG, 1 EVERY6 MONTHS
     Route: 042
  4. ACETAMINOPHEN [Concomitant]
     Active Substance: ACETAMINOPHEN
  5. CAFFEINE [Concomitant]
     Active Substance: CAFFEINE
  6. CANNABIS SATIVA FLOWERING TOP [Concomitant]
     Active Substance: CANNABIS SATIVA FLOWERING TOP
  7. ETHINYL ESTRADIOL\LEVONORGESTREL [Concomitant]
     Active Substance: ETHINYL ESTRADIOL\LEVONORGESTREL
  8. GABAPENTIN [Concomitant]
     Active Substance: GABAPENTIN
  9. MODAFINIL [Concomitant]
     Active Substance: MODAFINIL
  10. ELASOMERAN [Concomitant]
     Active Substance: ELASOMERAN
     Route: 065
  11. MYRBETRIQ [Concomitant]
     Active Substance: MIRABEGRON
  12. PREDNISONE [Concomitant]
     Active Substance: PREDNISONE
  13. VALACYCLOVIR HYDROCHLORIDE [Concomitant]
     Active Substance: VALACYCLOVIR HYDROCHLORIDE
  14. DICLOFENAC [Concomitant]
     Active Substance: DICLOFENAC
  15. ZOPICLONE [Concomitant]
     Active Substance: ZOPICLONE

REACTIONS (29)
  - Asthenia [Not Recovered/Not Resolved]
  - Back injury [Not Recovered/Not Resolved]
  - Bipolar I disorder [Not Recovered/Not Resolved]
  - Clumsiness [Not Recovered/Not Resolved]
  - Confusional state [Not Recovered/Not Resolved]
  - Cough [Not Recovered/Not Resolved]
  - Dizziness [Not Recovered/Not Resolved]
  - Ear pain [Not Recovered/Not Resolved]
  - Emotional disorder [Not Recovered/Not Resolved]
  - Fatigue [Not Recovered/Not Resolved]
  - Feeling abnormal [Not Recovered/Not Resolved]
  - Frequent bowel movements [Not Recovered/Not Resolved]
  - Hallucination [Not Recovered/Not Resolved]
  - Headache [Not Recovered/Not Resolved]
  - Hypoaesthesia [Not Recovered/Not Resolved]
  - Infusion related reaction [Not Recovered/Not Resolved]
  - Libido decreased [Not Recovered/Not Resolved]
  - Muscle spasms [Not Recovered/Not Resolved]
  - Muscle twitching [Not Recovered/Not Resolved]
  - Nervousness [Not Recovered/Not Resolved]
  - Optic neuritis [Not Recovered/Not Resolved]
  - Pain [Not Recovered/Not Resolved]
  - Paraesthesia [Not Recovered/Not Resolved]
  - Poor quality sleep [Not Recovered/Not Resolved]
  - SARS-CoV-2 test positive [Not Recovered/Not Resolved]
  - Tremor [Not Recovered/Not Resolved]
  - Urticaria [Not Recovered/Not Resolved]
  - Vision blurred [Not Recovered/Not Resolved]
  - Visual impairment [Not Recovered/Not Resolved]
